FAERS Safety Report 8590786-7 (Version None)
Quarter: 2012Q3

REPORT INFORMATION
  Report Type: 
  Country: None (occurrence: None)
  Receive Date: 20120813
  Receipt Date: 20120802
  Transmission Date: 20120928
  Serious: No
  Sender: FDA-Public Use
  Company Number: US-ELI_LILLY_AND_COMPANY-US201203001717

PATIENT
  Sex: Female

DRUGS (2)
  1. FORTEO [Suspect]
     Indication: OSTEOPOROSIS
     Dosage: UNK, UNKNOWN
  2. FORTEO [Suspect]
     Dosage: 20 UG, QD
     Dates: start: 20110101

REACTIONS (7)
  - INJECTION SITE ERYTHEMA [None]
  - MUSCLE INJURY [None]
  - TREMOR [None]
  - ACTIVITIES OF DAILY LIVING IMPAIRED [None]
  - FRUSTRATION [None]
  - MUSCULOSKELETAL DISCOMFORT [None]
  - WEIGHT DECREASED [None]
